FAERS Safety Report 9456121 (Version 1)
Quarter: 2013Q3

REPORT INFORMATION
  Report Type: Report from Study
  Country: US (occurrence: US)
  Receive Date: 20130813
  Receipt Date: 20130813
  Transmission Date: 20140515
  Serious: Yes (Other)
  Sender: FDA-Public Use
  Company Number: US-JNJFOC-20130802447

PATIENT
  Sex: Male
  Weight: 84.82 kg

DRUGS (3)
  1. REMICADE [Suspect]
     Indication: PSORIATIC ARTHROPATHY
     Route: 042
     Dates: start: 200812, end: 201212
  2. TRAVATAN [Concomitant]
     Indication: GLAUCOMA
     Route: 065
     Dates: start: 2005
  3. SULFA [Concomitant]
     Indication: ARTHRITIS
     Route: 065
     Dates: start: 2013

REACTIONS (6)
  - Presyncope [Recovered/Resolved]
  - Pain in extremity [Not Recovered/Not Resolved]
  - Muscle spasms [Recovered/Resolved]
  - Therapeutic response decreased [Recovered/Resolved]
  - Poor venous access [Recovered/Resolved]
  - Local swelling [Recovering/Resolving]
